FAERS Safety Report 9485636 (Version 3)
Quarter: 2013Q3

REPORT INFORMATION
  Report Type: Spontaneous
  Country: JP (occurrence: JP)
  Receive Date: 20130829
  Receipt Date: 20130906
  Transmission Date: 20140515
  Serious: Yes (Other)
  Sender: FDA-Public Use
  Company Number: JP-BRISTOL-MYERS SQUIBB COMPANY-19173459

PATIENT
  Sex: 0

DRUGS (1)
  1. ELIQUIS [Suspect]
     Indication: THROMBOSIS PROPHYLAXIS
     Dosage: ELIQUIS TABS 5MG
     Route: 048

REACTIONS (2)
  - Gastrointestinal haemorrhage [Recovered/Resolved]
  - Full blood count decreased [Recovered/Resolved]
